FAERS Safety Report 16641779 (Version 1)
Quarter: 2019Q3

REPORT INFORMATION
  Report Type: Spontaneous
  Country: US (occurrence: US)
  Receive Date: 20190726
  Receipt Date: 20190726
  Transmission Date: 20191004
  Serious: Yes (Life-Threatening, Hospitalization)
  Sender: FDA-Public Use
  Company Number: None

PATIENT
  Age: 70 Year
  Sex: Female

DRUGS (2)
  1. BACLOFEN. [Suspect]
     Active Substance: BACLOFEN
  2. OXYCODONE [Suspect]
     Active Substance: OXYCODONE

REACTIONS (2)
  - Hypotension [None]
  - Mental status changes [None]

NARRATIVE: CASE EVENT DATE: 20190712
